FAERS Safety Report 6429523-0 (Version None)
Quarter: 2009Q4

REPORT INFORMATION
  Report Type: 
  Country: None (occurrence: None)
  Receive Date: 20091102
  Receipt Date: 20091023
  Transmission Date: 20100525
  Serious: Yes (Hospitalization, Other)
  Sender: FDA-Public Use
  Company Number: 09RO004597

PATIENT
  Age: 23 Year
  Sex: Female
  Weight: 49.9 kg

DRUGS (2)
  1. ACETAMINOPHEN [Suspect]
     Indication: SUICIDE ATTEMPT
     Dosage: SINGLE, ORAL
     Route: 048
  2. NIFEDIPINE [Suspect]
     Indication: SUICIDE ATTEMPT
     Dosage: 3000 MG, SINGLE, ORAL
     Route: 048

REACTIONS (18)
  - CHEST DISCOMFORT [None]
  - CYTOLYTIC HEPATITIS [None]
  - GASTROINTESTINAL SOUNDS ABNORMAL [None]
  - HYPOTENSION [None]
  - MENTAL STATUS CHANGES [None]
  - METABOLIC ACIDOSIS [None]
  - MULTI-ORGAN FAILURE [None]
  - NAUSEA [None]
  - OVERDOSE [None]
  - PALPITATIONS [None]
  - PANCREATITIS ACUTE [None]
  - PLEURISY [None]
  - RENAL FAILURE [None]
  - RESPIRATORY DISTRESS [None]
  - SEPSIS [None]
  - SUICIDE ATTEMPT [None]
  - TACHYCARDIA [None]
  - TINNITUS [None]
